FAERS Safety Report 22654703 (Version 1)
Quarter: 2023Q2

REPORT INFORMATION
  Report Type: Report from Study
  Country: US (occurrence: US)
  Receive Date: 20230629
  Receipt Date: 20230629
  Transmission Date: 20230721
  Serious: Yes (Hospitalization)
  Sender: FDA-Public Use
  Company Number: US-GILEAD-2023-0621472

PATIENT
  Age: 48 Year
  Sex: Male
  Weight: 129 kg

DRUGS (28)
  1. AXICABTAGENE CILOLEUCEL [Suspect]
     Active Substance: AXICABTAGENE CILOLEUCEL
     Indication: Diffuse large B-cell lymphoma
     Route: 042
     Dates: start: 20230313, end: 20230313
  2. FLUDARABINE [Suspect]
     Active Substance: FLUDARABINE PHOSPHATE
     Indication: Diffuse large B-cell lymphoma
     Dosage: 30 MG
     Route: 065
     Dates: start: 20230308, end: 20230310
  3. CYCLOPHOSPHAMIDE [Suspect]
     Active Substance: CYCLOPHOSPHAMIDE
     Indication: Diffuse large B-cell lymphoma
     Dosage: 500 MG
     Route: 065
     Dates: start: 20230308, end: 20230310
  4. REMDESIVIR [Concomitant]
     Active Substance: REMDESIVIR
     Dosage: 100,MG,DAILY
     Route: 042
     Dates: start: 20230319, end: 20230322
  5. HYZAAR [Concomitant]
     Active Substance: HYDROCHLOROTHIAZIDE\LOSARTAN POTASSIUM
     Dosage: 25,MG,DAILY
     Route: 048
     Dates: start: 20160729
  6. NORVASC [Concomitant]
     Active Substance: AMLODIPINE BESYLATE
     Dosage: 5,MG,DAILY
     Route: 048
     Dates: start: 20180101
  7. VALACYCLOVIR [Concomitant]
     Active Substance: VALACYCLOVIR HYDROCHLORIDE
     Dosage: 500,MG,DAILY
     Route: 048
     Dates: start: 20230210
  8. PANTOPRAZOLE [Concomitant]
     Active Substance: PANTOPRAZOLE
     Dosage: 40,MG,DAILY
     Route: 048
     Dates: start: 20230210
  9. VITAMIN D3 [Concomitant]
     Active Substance: CHOLECALCIFEROL
     Dosage: 125,MG,DAILY
     Route: 048
     Dates: start: 20230210
  10. DEXTROMETHORPHAN [Concomitant]
     Active Substance: DEXTROMETHORPHAN
     Dosage: 10,ML,AS NECESSARY
     Route: 048
     Dates: start: 20230210
  11. ONDANSETRON [Concomitant]
     Active Substance: ONDANSETRON
     Dosage: 8,MG,AS NECESSARY
     Route: 048
     Dates: start: 20230210
  12. PROCHLORPERAZINE [Concomitant]
     Active Substance: PROCHLORPERAZINE
     Dosage: 10,MG,AS NECESSARY
     Route: 048
     Dates: start: 20230210
  13. SENNA S [DOCUSATE SODIUM;SENNOSIDE A+B] [Concomitant]
     Dosage: 50,MG,AS NECESSARY
     Route: 048
     Dates: start: 20230210
  14. BACITRACIN [Concomitant]
     Active Substance: BACITRACIN
     Dosage: 500,OTHER,AS NECESSARY
     Route: 061
     Dates: start: 20230301
  15. APRESOLINE HYDROCHLORIDE [Concomitant]
     Active Substance: HYDRALAZINE HYDROCHLORIDE
     Dosage: 20,OTHER,AS NECESSARY
     Route: 042
     Dates: start: 20230301, end: 20230304
  16. LIDOCAINE [Concomitant]
     Active Substance: LIDOCAINE
     Dosage: 5,ML,AS NECESSARY
     Route: 058
     Dates: start: 20230301, end: 20230304
  17. METOPROLOL [Concomitant]
     Active Substance: METOPROLOL
     Dosage: 2,MG,AS NECESSARY
     Route: 042
     Dates: start: 20230301, end: 20230304
  18. ELIQUIS [Concomitant]
     Active Substance: APIXABAN
     Dosage: 2.5,MG,TWICE DAILY
     Route: 048
     Dates: start: 20230313, end: 20230316
  19. ELIQUIS [Concomitant]
     Active Substance: APIXABAN
     Dosage: 2.5,MG,TWICE DAILY
     Route: 048
     Dates: start: 20230327, end: 20230329
  20. LEVETIRACETAM [Concomitant]
     Active Substance: LEVETIRACETAM
     Dosage: 750,MG,DAILY
     Route: 048
     Dates: start: 20230313, end: 20230329
  21. TOCILIZUMAB [Concomitant]
     Active Substance: TOCILIZUMAB
     Dosage: 800,MG,DAILY
     Route: 042
     Dates: start: 20230313, end: 20230326
  22. MAGNESIUM SULFATE [Concomitant]
     Active Substance: MAGNESIUM SULFATE
     Dosage: 2,G,AS NECESSARY
     Route: 048
     Dates: start: 20230314, end: 20230328
  23. ZARXIO [Concomitant]
     Active Substance: FILGRASTIM-SNDZ
     Dosage: 480,MG,DAILY
     Route: 058
     Dates: start: 20230315, end: 20230321
  24. VANCOMYCIN [Concomitant]
     Active Substance: VANCOMYCIN
     Dosage: 2000,MG,DAILY
     Route: 042
     Dates: start: 20230319, end: 20230322
  25. ENOXAPARIN [Concomitant]
     Active Substance: ENOXAPARIN
     Dosage: 40,MG,TWICE DAILY
     Route: 042
     Dates: start: 20230324, end: 20230327
  26. BACLOFEN [Concomitant]
     Active Substance: BACLOFEN
     Dosage: 5,MG,THREE TIMES DAILY
     Route: 048
     Dates: start: 20230326, end: 20230329
  27. LASIX [Concomitant]
     Active Substance: FUROSEMIDE
     Dosage: 40,MG,ONCE
     Route: 042
     Dates: start: 20230328, end: 20230328
  28. SULFAMETHOXAZOLE AND TRIMETHOPRIM [Concomitant]
     Active Substance: SULFAMETHOXAZOLE\TRIMETHOPRIM
     Dosage: 160,MG,OTHER
     Route: 048
     Dates: start: 20230329

REACTIONS (4)
  - White blood cell count decreased [Recovered/Resolved]
  - Thrombocytopenia [Recovered/Resolved]
  - Immune effector cell-associated neurotoxicity syndrome [Recovered/Resolved]
  - Cytokine release syndrome [Recovered/Resolved]

NARRATIVE: CASE EVENT DATE: 20230316
